FAERS Safety Report 6623810-9 (Version None)
Quarter: 2010Q1

REPORT INFORMATION
  Report Type: 
  Country: None (occurrence: None)
  Receive Date: 20100310
  Receipt Date: 20100225
  Transmission Date: 20100710
  Serious: Yes (Other)
  Sender: FDA-Public Use
  Company Number: PHHY2008BR25255

PATIENT
  Sex: Female
  Weight: 85.5 kg

DRUGS (5)
  1. FORASEQ [Suspect]
     Indication: DYSPNOEA
     Dosage: 2 INHALATIONS DAILY WITH EACH ACTIVE COMPONENT
     Dates: start: 20080101
  2. FORASEQ [Suspect]
     Indication: COUGH
     Dosage: 1 INHALATION A DAY WITH EACH ACTIVE COMPONENT
     Dates: start: 20080101
  3. FORASEQ [Suspect]
     Indication: PRURITUS
     Dosage: TID
     Dates: start: 20090401
  4. FORASEQ [Suspect]
     Indication: MALAISE
     Dosage: BID
  5. FORASEQ [Suspect]
     Indication: BRONCHITIS

REACTIONS (7)
  - COUGH [None]
  - DYSPNOEA [None]
  - GENERALISED OEDEMA [None]
  - MALAISE [None]
  - PRURITUS [None]
  - SKIN DISCOLOURATION [None]
  - TREATMENT NONCOMPLIANCE [None]
